FAERS Safety Report 6381303-0 (Version None)
Quarter: 2009Q3

REPORT INFORMATION
  Report Type: 
  Country: None (occurrence: None)
  Receive Date: 20090929
  Receipt Date: 20090914
  Transmission Date: 20100115
  Serious: Yes (Hospitalization)
  Sender: FDA-Public Use
  Company Number: DE-GENENTECH-291093

PATIENT
  Sex: Female

DRUGS (6)
  1. RITUXIMAB [Suspect]
     Indication: FELTY'S SYNDROME
     Dosage: 1000 MG, Q14D
     Route: 042
     Dates: start: 20060101, end: 20090301
  2. PREDNISOLONE [Concomitant]
     Indication: DRUG USE FOR UNKNOWN INDICATION
     Dosage: UNK
     Dates: start: 20080601
  3. METHOTREXATE [Concomitant]
     Indication: DRUG USE FOR UNKNOWN INDICATION
     Dosage: UNK
     Dates: start: 20080801
  4. VOLTAREN [Concomitant]
     Indication: DRUG USE FOR UNKNOWN INDICATION
  5. PANTOZOL [Concomitant]
     Indication: DRUG USE FOR UNKNOWN INDICATION
     Dosage: UNK
  6. CALCIUM NOS/CHOLECALCIFEROL [Concomitant]
     Indication: DRUG USE FOR UNKNOWN INDICATION
     Dosage: UNK

REACTIONS (1)
  - MALIGNANT MELANOMA [None]
